FAERS Safety Report 20024302 (Version 4)
Quarter: 2022Q4

REPORT INFORMATION
  Report Type: Spontaneous
  Country: CO (occurrence: CO)
  Receive Date: 20211102
  Receipt Date: 20221220
  Transmission Date: 20230113
  Serious: No
  Sender: FDA-Public Use
  Company Number: CO-PFIZER INC-202101324581

PATIENT
  Age: 10 Year
  Sex: Male

DRUGS (1)
  1. GENOTROPIN [Suspect]
     Active Substance: SOMATROPIN
     Dosage: 1.2 MG, UNSPECIFIED FREQUENCY
     Route: 058
     Dates: start: 20200825

REACTIONS (5)
  - Device failure [Unknown]
  - Device leakage [Unknown]
  - Device mechanical issue [Unknown]
  - Incorrect dose administered by device [Unknown]
  - Poor quality device used [Unknown]

NARRATIVE: CASE EVENT DATE: 20210101
